FAERS Safety Report 7294021-1 (Version None)
Quarter: 2011Q1

REPORT INFORMATION
  Report Type: 
  Country: None (occurrence: None)
  Receive Date: 20110215
  Receipt Date: 20110207
  Transmission Date: 20110831
  Serious: Yes (Other)
  Sender: FDA-Public Use
  Company Number: US-ROCHE-690669

PATIENT
  Sex: Male

DRUGS (1)
  1. ACCUTANE [Suspect]
     Indication: ACNE
     Dosage: STRENGTH 20 MG AND 40 MG/CAPSULE
     Route: 048
     Dates: start: 19990112, end: 19990501

REACTIONS (6)
  - ANAL ABSCESS [None]
  - IRRITABLE BOWEL SYNDROME [None]
  - ANAL FISTULA [None]
  - CROHN'S DISEASE [None]
  - INFLAMMATORY BOWEL DISEASE [None]
  - COLITIS ULCERATIVE [None]
